FAERS Safety Report 13900515 (Version 1)
Quarter: 2017Q3

REPORT INFORMATION
  Report Type: Spontaneous
  Country: US (occurrence: None)
  Receive Date: 20170818
  Receipt Date: 20170818
  Transmission Date: 20171127
  Serious: Yes (Other)
  Sender: FDA-Public Use
  Company Number: None

PATIENT
  Age: 52 Year
  Sex: Female
  Weight: 63.05 kg

DRUGS (1)
  1. IMIQUIMOD 5% CREAM PACKET, .25 G PERRIGO [Suspect]
     Active Substance: IMIQUIMOD
     Indication: VULVAR DYSPLASIA
     Dosage: 3X A WK AFFECTED AREA

REACTIONS (12)
  - Influenza like illness [None]
  - Application site ulcer [None]
  - Headache [None]
  - Chills [None]
  - Fatigue [None]
  - Joint stiffness [None]
  - Rhinorrhoea [None]
  - Pyrexia [None]
  - Pain [None]
  - Sneezing [None]
  - Erythema [None]
  - Oropharyngeal pain [None]

NARRATIVE: CASE EVENT DATE: 20170728
